FAERS Safety Report 7249339-5 (Version None)
Quarter: 2011Q1

REPORT INFORMATION
  Report Type: 
  Country: None (occurrence: None)
  Receive Date: 20110128
  Receipt Date: 20101215
  Transmission Date: 20110831
  Serious: Yes (Other)
  Sender: FDA-Public Use
  Company Number: CH-BAYER-2010-004634

PATIENT

DRUGS (2)
  1. AVELOX [Suspect]
     Indication: MENINGITIS TUBERCULOUS
  2. ETHAMBUTOL HYDROCHLORIDE [Suspect]
     Indication: MENINGITIS TUBERCULOUS

REACTIONS (1)
  - OPTIC NEUROPATHY [None]
